FAERS Safety Report 5058081-0 (Version None)
Quarter: 2006Q3

REPORT INFORMATION
  Report Type: 
  Country: None (occurrence: None)
  Receive Date: 20060721
  Receipt Date: 20060710
  Transmission Date: 20061208
  Serious: Yes (Other)
  Sender: FDA-Public Use
  Company Number: US-ROCHE-454978

PATIENT
  Sex: Female

DRUGS (2)
  1. VALCYTE [Suspect]
     Route: 065
  2. MULTIPLE UNSPECIFIED MEDICATIONS [Concomitant]

REACTIONS (1)
  - RETINAL VEIN OCCLUSION [None]
